FAERS Safety Report 23686830 (Version 1)
Quarter: 2024Q1

REPORT INFORMATION
  Report Type: Spontaneous
  Country: US (occurrence: None)
  Receive Date: 20240328
  Receipt Date: 20240328
  Transmission Date: 20240410
  Serious: Yes (Other)
  Sender: FDA-Public Use
  Company Number: None

PATIENT
  Age: 54 Year
  Sex: Female
  Weight: 62.55 kg

DRUGS (1)
  1. BOTOX [Suspect]
     Active Substance: ONABOTULINUMTOXINA
     Indication: Skin wrinkling
     Route: 058
     Dates: start: 20240301

REACTIONS (9)
  - Malaise [None]
  - Vomiting [None]
  - Diplopia [None]
  - Eyelid ptosis [None]
  - Aphasia [None]
  - Dysphagia [None]
  - Paralysis [None]
  - Dyspnoea [None]
  - Hyporeflexia [None]

NARRATIVE: CASE EVENT DATE: 20240301
